FAERS Safety Report 18067686 (Version 1)
Quarter: 2020Q3

REPORT INFORMATION
  Report Type: Spontaneous
  Country: US (occurrence: US)
  Receive Date: 20200724
  Receipt Date: 20200724
  Transmission Date: 20201103
  Serious: No
  Sender: FDA-Public Use
  Company Number: US-SA-2020SA188505

PATIENT

DRUGS (2)
  1. MORTIN [Concomitant]
     Active Substance: SULFAMETHOXAZOLE\TRIMETHOPRIM
     Dosage: UNK
     Route: 065
  2. ALLEGRA ALLERGY [Suspect]
     Active Substance: FEXOFENADINE HYDROCHLORIDE
     Indication: HYPERSENSITIVITY
     Dosage: 1 DF, PRN
     Route: 065

REACTIONS (4)
  - Abdominal pain upper [Unknown]
  - Peripheral swelling [Unknown]
  - Muscle spasms [Unknown]
  - Vomiting [Unknown]
